FAERS Safety Report 15861988 (Version 4)
Quarter: 2019Q2

REPORT INFORMATION
  Report Type: Spontaneous
  Country: US (occurrence: US)
  Receive Date: 20190124
  Receipt Date: 20190426
  Transmission Date: 20190711
  Serious: No
  Sender: FDA-Public Use
  Company Number: US-BRISTOL-MYERS SQUIBB COMPANY-BMS-2019-005741

PATIENT
  Sex: Female
  Weight: 96.6 kg

DRUGS (1)
  1. ORENCIA [Suspect]
     Active Substance: ABATACEPT
     Indication: RHEUMATOID ARTHRITIS
     Dosage: 125 MG, QWK
     Route: 058
     Dates: start: 201812

REACTIONS (6)
  - Nausea [Unknown]
  - Skin mass [Unknown]
  - Pain [Unknown]
  - Limb mass [Unknown]
  - Nasopharyngitis [Unknown]
  - Mass [Unknown]
